FAERS Safety Report 5067582-0 (Version None)
Quarter: 2006Q3

REPORT INFORMATION
  Report Type: 
  Country: None (occurrence: None)
  Receive Date: 20060713
  Receipt Date: 20060317
  Transmission Date: 20061208
  Serious: Yes (Other)
  Sender: FDA-Public Use
  Company Number: 2006013085

PATIENT
  Sex: Female

DRUGS (1)
  1. DEPO-SUBQ PROVERA 104 [Suspect]
     Indication: CONTRACEPTION
     Dosage: 104 MG (104 MG,LAST INJECTION), SUBCUTANEOUS
     Route: 058
     Dates: start: 20051128, end: 20051128

REACTIONS (1)
  - UNINTENDED PREGNANCY [None]
